FAERS Safety Report 7531567-2 (Version None)
Quarter: 2011Q2

REPORT INFORMATION
  Report Type: 
  Country: None (occurrence: None)
  Receive Date: 20110601
  Receipt Date: 20110516
  Transmission Date: 20111010
  Serious: Yes (Hospitalization)
  Sender: FDA-Public Use
  Company Number: DSJ-2011-07015

PATIENT
  Age: 67 Year
  Sex: Male

DRUGS (14)
  1. VOALLA (DEXAMETHASONE VALERATE) (OINTMENT) [Concomitant]
  2. DIFAL (DIFLORASONE DIACETATE) (OINTMENT) [Concomitant]
  3. METFORMIN HCL [Concomitant]
  4. PETROLATUM SALICYLATE (SALICYLIC ACID, PETROLATUM) (OINTMENT) [Concomitant]
  5. ZESULAN (MEQUITAZINE) (TABLET) [Concomitant]
  6. NORVASC [Concomitant]
  7. OLMESARTAN MEDOXOMIL [Suspect]
     Indication: PRODUCT USED FOR UNKNOWN INDICATION
     Dosage: PER ORAL
     Route: 048
     Dates: start: 20060401, end: 20080101
  8. MINOCYCLINE HYDROCHLORIDE [Suspect]
     Indication: SEBORRHOEIC DERMATITIS
     Dosage: 100 MG 950 MG, 2 IN 1 D), PER ORAL; 50 MG (50 MG, 1 IN 1 D), PER ORAL
     Route: 048
     Dates: start: 20071231, end: 20080104
  9. MINOCYCLINE HYDROCHLORIDE [Suspect]
     Indication: SEBORRHOEIC DERMATITIS
     Dosage: 100 MG 950 MG, 2 IN 1 D), PER ORAL; 50 MG (50 MG, 1 IN 1 D), PER ORAL
     Route: 048
     Dates: start: 20071225, end: 20071230
  10. GLYBURIDE [Concomitant]
  11. ALLEGRA (FEXOFENADINE) (TABLET) [Concomitant]
  12. FULMETA (MOMETASONE FUROATE) [Concomitant]
  13. CELESTAMINE (CHLORPHENAMINE MALEATE) [Concomitant]
  14. FLOMOX (CEFCAPENE PIVOXIL HYDROCHLORIDE) [Concomitant]

REACTIONS (3)
  - SEBORRHOEIC DERMATITIS [None]
  - DRUG ERUPTION [None]
  - LYMPHOCYTE STIMULATION TEST POSITIVE [None]
